FAERS Safety Report 5282589-6 (Version None)
Quarter: 2007Q1

REPORT INFORMATION
  Report Type: 
  Country: None (occurrence: None)
  Receive Date: 20070326
  Receipt Date: 20070309
  Transmission Date: 20070707
  Serious: Yes (Life-Threatening, Hospitalization)
  Sender: FDA-Public Use
  Company Number: 235584

PATIENT
  Age: 61 Year
  Sex: Male
  Weight: 113.4 kg

DRUGS (15)
  1. AVASTIN [Suspect]
     Indication: COLON CANCER
     Dosage: 852 MG, Q3W, INTRAVENOUS
     Route: 042
     Dates: start: 20060926, end: 20061015
  2. CAPECITABINE(CAPECITABINE) [Suspect]
     Indication: COLON CANCER
     Dosage: 2330 MG, BID, ORAL
     Route: 048
     Dates: start: 20060926, end: 20061015
  3. CAPECITABINE(CAPECITABINE) [Suspect]
     Indication: COLON CANCER
     Dosage: 2330 MG, BID, ORAL
     Route: 048
  4. OXALIPLATIN [Suspect]
     Indication: COLON CANCER
     Dosage: 299 MG, Q3W, INTRAVENOUS
     Route: 042
     Dates: start: 20060926, end: 20061015
  5. HYDROCHLOROTHIAZIDE [Concomitant]
  6. ASPIRIN [Concomitant]
  7. NITROGLYCERIN [Concomitant]
  8. TEMORMIN (ATENOLOL) [Concomitant]
  9. VASOTEC [Concomitant]
  10. TRICOR [Concomitant]
  11. GLIPIZIDE [Concomitant]
  12. AVANDIA [Concomitant]
  13. METFORMIN HCL [Concomitant]
  14. FLONASE [Concomitant]
  15. OMEGA-3 POLYUNSATURATED FATTY ACIDS (DOCOSAHEXAENOIC ACID, EICOSAPENTA [Concomitant]

REACTIONS (8)
  - CATHETER SEPSIS [None]
  - DEHYDRATION [None]
  - DIABETIC KETOACIDOSIS [None]
  - GLYCOSYLATED HAEMOGLOBIN INCREASED [None]
  - IMPAIRED HEALING [None]
  - MALIGNANT PLEURAL EFFUSION [None]
  - RENAL FAILURE ACUTE [None]
  - STAPHYLOCOCCAL SEPSIS [None]
